FAERS Safety Report 8971690 (Version 1)
Quarter: 2012Q4

REPORT INFORMATION
  Report Type: 
  Country: US (occurrence: US)
  Receive Date: 20121217
  Receipt Date: 20121217
  Transmission Date: 20130627
  Serious: Yes (Other)
  Sender: FDA-Public Use
  Company Number: US-JNJFOC-20121202965

PATIENT
  Sex: Male

DRUGS (1)
  1. SANDOZ FENTANYL TRANSDERMAL SYSTEM [Suspect]
     Indication: ANALGESIC THERAPY
     Route: 062

REACTIONS (3)
  - Neuroma [Recovered/Resolved]
  - Foot fracture [Unknown]
  - Insomnia [Not Recovered/Not Resolved]
